FAERS Safety Report 25288816 (Version 1)
Quarter: 2025Q2

REPORT INFORMATION
  Report Type: Report from Study
  Country: US (occurrence: US)
  Receive Date: 20250509
  Receipt Date: 20250509
  Transmission Date: 20250717
  Serious: Yes (Hospitalization)
  Sender: ABBVIE
  Company Number: US-ABBVIE-6129247

PATIENT
  Sex: Male

DRUGS (2)
  1. SKYRIZI [Suspect]
     Active Substance: RISANKIZUMAB-RZAA
     Indication: Psoriasis
     Route: 058
     Dates: start: 20210120
  2. SKYRIZI [Suspect]
     Active Substance: RISANKIZUMAB-RZAA
     Indication: Crohn^s disease

REACTIONS (7)
  - Gastrointestinal scarring [Recovered/Resolved]
  - Psoriasis [Recovering/Resolving]
  - Crohn^s disease [Unknown]
  - Stress at work [Unknown]
  - Hyperkeratosis [Unknown]
  - Anxiety [Recovering/Resolving]
  - Off label use [Unknown]
